FAERS Safety Report 13576094 (Version 1)
Quarter: 2017Q2

REPORT INFORMATION
  Report Type: Spontaneous
  Country: US (occurrence: US)
  Receive Date: 20170523
  Receipt Date: 20170523
  Transmission Date: 20170830
  Serious: No
  Sender: FDA-Public Use
  Company Number: None

PATIENT
  Age: 52 Year
  Sex: Female
  Weight: 115.21 kg

DRUGS (1)
  1. LANTUS [Suspect]
     Active Substance: INSULIN GLARGINE
     Indication: DIABETES MELLITUS
     Dosage: DOSE - 10ML EVERY DAY?ROUTE - INJECTION
     Dates: start: 20170518

REACTIONS (9)
  - Heart rate abnormal [None]
  - Headache [None]
  - Weight increased [None]
  - Impaired healing [None]
  - Hyperhidrosis [None]
  - Somnolence [None]
  - Confusional state [None]
  - Dizziness [None]
  - Asthenia [None]
